FAERS Safety Report 14748303 (Version 1)
Quarter: 2018Q2

REPORT INFORMATION
  Report Type: Spontaneous
  Country: US (occurrence: US)
  Receive Date: 20180411
  Receipt Date: 20180411
  Transmission Date: 20180711
  Serious: No
  Sender: FDA-Public Use
  Company Number: US-AMGEN-USASP2016136327

PATIENT
  Age: 67 Year
  Sex: Female

DRUGS (5)
  1. GABAPENTIN. [Concomitant]
     Active Substance: GABAPENTIN
     Dosage: UNK UNK, BID
  2. PROLIA [Suspect]
     Active Substance: DENOSUMAB
     Indication: OSTEOPOROSIS
     Dosage: 60 MG, Q6MO
     Route: 065
     Dates: start: 201409
  3. SUCRALFATE. [Concomitant]
     Active Substance: SUCRALFATE
     Dosage: UNK
  4. PANTOPRAZOLE [Concomitant]
     Active Substance: PANTOPRAZOLE
     Dosage: UNK
  5. VITAMIN D [Concomitant]
     Active Substance: CHOLECALCIFEROL
     Dosage: UNK

REACTIONS (16)
  - Sciatica [Not Recovered/Not Resolved]
  - Nasal congestion [Unknown]
  - Productive cough [Recovering/Resolving]
  - Immune system disorder [Unknown]
  - Arthralgia [Unknown]
  - Depression [Unknown]
  - Viral infection [Unknown]
  - Fibromyalgia [Unknown]
  - Alopecia [Unknown]
  - Bacterial infection [Unknown]
  - Vomiting [Unknown]
  - Feeling hot [Unknown]
  - Drug dose omission [Unknown]
  - Fatigue [Unknown]
  - Skin disorder [Unknown]
  - Pyrexia [Recovered/Resolved]
